FAERS Safety Report 5872714-8 (Version None)
Quarter: 2008Q3

REPORT INFORMATION
  Report Type: 
  Country: None (occurrence: None)
  Receive Date: 20080905
  Receipt Date: 20080829
  Transmission Date: 20090109
  Serious: Yes (Hospitalization)
  Sender: FDA-Public Use
  Company Number: JP-PFIZER INC-2008070215

PATIENT
  Age: 79 Year
  Sex: Female

DRUGS (4)
  1. NORVASC [Suspect]
     Route: 048
  2. DRUG, UNSPECIFIED [Suspect]
  3. BLOPRESS [Concomitant]
     Route: 048
  4. ASPIRIN [Concomitant]
     Route: 048

REACTIONS (3)
  - BLOOD PRESSURE DECREASED [None]
  - INTENTIONAL OVERDOSE [None]
  - SUICIDE ATTEMPT [None]
